FAERS Safety Report 16945019 (Version 1)
Quarter: 2019Q4

REPORT INFORMATION
  Report Type: Spontaneous
  Country: US (occurrence: US)
  Receive Date: 20191021
  Receipt Date: 20191021
  Transmission Date: 20200122
  Serious: No
  Sender: FDA-Public Use
  Company Number: None

PATIENT
  Age: 52 Year
  Sex: Female
  Weight: 67.5 kg

DRUGS (3)
  1. ELIQUIS [Concomitant]
     Active Substance: APIXABAN
  2. LOW DOSE ADULT ASPIRIN [Concomitant]
     Active Substance: ASPIRIN
  3. ENOXAPARIN SODIUM. [Suspect]
     Active Substance: ENOXAPARIN SODIUM
     Indication: DEEP VEIN THROMBOSIS
     Route: 058
     Dates: start: 20190915, end: 20191015

REACTIONS (4)
  - Injection site vesicles [None]
  - Injection site dryness [None]
  - Injection site induration [None]
  - Injection site discolouration [None]

NARRATIVE: CASE EVENT DATE: 20190919
